FAERS Safety Report 15269873 (Version 2)
Quarter: 2018Q3

REPORT INFORMATION
  Report Type: Spontaneous
  Country: US (occurrence: US)
  Receive Date: 20180813
  Receipt Date: 20180919
  Transmission Date: 20181010
  Serious: Yes (Other)
  Sender: FDA-Public Use
  Company Number: US-ROCHE-2166930

PATIENT
  Sex: Female

DRUGS (9)
  1. LORAZEPAM. [Concomitant]
     Active Substance: LORAZEPAM
  2. CIPROFLOXACIN HCL [Concomitant]
     Active Substance: CIPROFLOXACIN HYDROCHLORIDE
  3. SULFAMETHOXAZOLE/TRIMETHOPRIM [Concomitant]
     Active Substance: SULFAMETHOXAZOLE\TRIMETHOPRIM
  4. PREDNISONE. [Concomitant]
     Active Substance: PREDNISONE
     Route: 048
  5. TERCONAZOLE. [Concomitant]
     Active Substance: TERCONAZOLE
  6. FLUCONAZOLE. [Concomitant]
     Active Substance: FLUCONAZOLE
  7. CYCLOBENZAPRINE HCL [Concomitant]
     Active Substance: CYCLOBENZAPRINE HYDROCHLORIDE
  8. XOLAIR [Suspect]
     Active Substance: OMALIZUMAB
     Indication: ASTHMA
     Route: 058
  9. LEVAQUIN [Concomitant]
     Active Substance: LEVOFLOXACIN

REACTIONS (1)
  - Neoplasm [Not Recovered/Not Resolved]
